FAERS Safety Report 8977066 (Version 1)
Quarter: 2012Q4

REPORT INFORMATION
  Report Type: 
  Country: DE (occurrence: DE)
  Receive Date: 20121220
  Receipt Date: 20121220
  Transmission Date: 20130627
  Serious: Yes (Other)
  Sender: FDA-Public Use
  Company Number: DE-JNJFOC-20121207426

PATIENT

DRUGS (11)
  1. DOXORUBICIN [Suspect]
     Indication: B-CELL LYMPHOMA
     Dosage: on day 1 in R-MegaCHOEP-14, 14 day cycle
     Route: 042
  2. CYCLOPHOSPHAMIDE [Suspect]
     Indication: B-CELL LYMPHOMA
     Dosage: on day 1 in R-MegaCHOEP-14 in cycle 1, 14 day cycle
     Route: 065
  3. CYCLOPHOSPHAMIDE [Suspect]
     Indication: B-CELL LYMPHOMA
     Dosage: on day 1 in R-MegaCHOEP-14 in cycle 2 and 3, 14 day cycle
     Route: 065
  4. CYCLOPHOSPHAMIDE [Suspect]
     Indication: B-CELL LYMPHOMA
     Dosage: on day 1 in R-MegaCHOEP-14 in cycle 4, 14 day cycle
     Route: 065
  5. VINCRISTINE [Suspect]
     Indication: B-CELL LYMPHOMA
     Dosage: on day 1 in R-MegaCHOEP-14, 14 day cycle
     Route: 065
  6. ETOPOSIDE [Suspect]
     Indication: B-CELL LYMPHOMA
     Dosage: on days 1-3 in R-MegaCHOEP-14 in cycle 1, 14 day cycle
     Route: 065
  7. ETOPOSIDE [Suspect]
     Indication: B-CELL LYMPHOMA
     Dosage: on days 1-3 in R-MegaCHOEP-14 in cycle 4, 14 day cycle
     Route: 065
  8. ETOPOSIDE [Suspect]
     Indication: B-CELL LYMPHOMA
     Dosage: on days 1-3 in R-MegaCHOEP-14 in cycles 2 and 3, 14 day cycle
     Route: 065
  9. PREDNISONE [Suspect]
     Indication: B-CELL LYMPHOMA
     Dosage: on days 1-5 in R-MegaCHOEP-14, 14 day cycle
     Route: 065
  10. RITUXIMAB [Suspect]
     Indication: B-CELL LYMPHOMA
     Dosage: on day 0,14, 36, 56, 77, 98 in R-MegaCHOEP-14, 14 day cycle
     Route: 065
  11. GRANULOCYTE COLONY STIMULATING FACTOR [Concomitant]
     Indication: PROPHYLAXIS
     Dosage: started on day 6 after cycle 1
     Route: 065

REACTIONS (1)
  - Myelodysplastic syndrome [Unknown]
